FAERS Safety Report 16796294 (Version 2)
Quarter: 2019Q4

REPORT INFORMATION
  Report Type: Report from Study
  Country: CA (occurrence: CA)
  Receive Date: 20190911
  Receipt Date: 20191104
  Transmission Date: 20200122
  Serious: Yes (Other)
  Sender: FDA-Public Use
  Company Number: CA-GLAXOSMITHKLINE-CA2019AMR146438

PATIENT
  Sex: Male

DRUGS (2)
  1. MEPOLIZUMAB [Suspect]
     Active Substance: MEPOLIZUMAB
     Indication: ASTHMA
     Dosage: 100 MG, Z (MONTHLY)
     Route: 042
     Dates: start: 20180907
  2. MEPOLIZUMAB [Suspect]
     Active Substance: MEPOLIZUMAB
     Dosage: 100 MG, Z(MONTHLY)
     Route: 042

REACTIONS (9)
  - Dyspnoea [Not Recovered/Not Resolved]
  - Hypoventilation [Unknown]
  - Productive cough [Unknown]
  - Nasopharyngitis [Unknown]
  - Tracheal stenosis [Unknown]
  - Wheezing [Unknown]
  - Insomnia [Unknown]
  - Lip discolouration [Unknown]
  - Sputum discoloured [Unknown]
